FAERS Safety Report 4536697-5 (Version None)
Quarter: 2004Q4

REPORT INFORMATION
  Report Type: 
  Country: None (occurrence: None)
  Receive Date: 20041223
  Receipt Date: 20041217
  Transmission Date: 20050328
  Serious: Yes (Hospitalization)
  Sender: FDA-Public Use
  Company Number: 200414755FR

PATIENT
  Age: 72 Year
  Sex: Female

DRUGS (2)
  1. ARAVA [Suspect]
     Indication: RHEUMATOID ARTHRITIS
     Route: 048
     Dates: start: 20031001, end: 20041201
  2. ANTITHROMBOTIC AGENTS [Concomitant]
     Indication: PULMONARY EMBOLISM

REACTIONS (3)
  - PYREXIA [None]
  - RALES [None]
  - RESPIRATORY FAILURE [None]
